FAERS Safety Report 4315499-9 (Version None)
Quarter: 2004Q1

REPORT INFORMATION
  Report Type: 
  Country: None (occurrence: None)
  Receive Date: 20040311
  Receipt Date: 20030930
  Transmission Date: 20041129
  Serious: Yes (Hospitalization)
  Sender: FDA-Public Use
  Company Number: WAES 0310GBR00026

PATIENT
  Age: 52 Year
  Sex: Male

DRUGS (5)
  1. AMILORIDE HYDROCHLORIDE AND FUROSEMIDE [Concomitant]
     Indication: BLOOD PRESSURE
     Dates: start: 19860101
  2. ASPIRIN [Concomitant]
     Indication: PROPHYLAXIS
     Dates: start: 19860101
  3. CYCLOSPORINE [Concomitant]
     Indication: HEART TRANSPLANT
     Dates: start: 19860101
  4. ZETIA [Suspect]
     Indication: HYPERCHOLESTEROLAEMIA
     Route: 048
     Dates: start: 20030701, end: 20030919
  5. MINOCYCLINE HYDROCHLORIDE [Concomitant]
     Indication: ACNE
     Dates: start: 20010101

REACTIONS (3)
  - BLOOD UREA INCREASED [None]
  - CELLULITIS [None]
  - RASH [None]
